FAERS Safety Report 15250001 (Version 3)
Quarter: 2018Q4

REPORT INFORMATION
  Report Type: Spontaneous
  Country: US (occurrence: US)
  Receive Date: 20180807
  Receipt Date: 20181016
  Transmission Date: 20190204
  Serious: Yes (Death, Other)
  Sender: FDA-Public Use
  Company Number: US-GLAXOSMITHKLINE-US2018139509

PATIENT
  Age: 47 Year
  Sex: Female

DRUGS (2)
  1. BENLYSTA [Suspect]
     Active Substance: BELIMUMAB
     Indication: PRODUCT USED FOR UNKNOWN INDICATION
     Dosage: UNK UNK, CYC
     Route: 042
  2. ACTONEL [Suspect]
     Active Substance: RISEDRONATE SODIUM
     Indication: PRODUCT USED FOR UNKNOWN INDICATION
     Dosage: UNK
     Dates: end: 2017

REACTIONS (6)
  - Thrombophlebitis superficial [Fatal]
  - Thrombosis [Fatal]
  - Adverse drug reaction [Recovering/Resolving]
  - Systemic lupus erythematosus [Fatal]
  - Pulmonary embolism [Fatal]
  - Pain in extremity [Unknown]

NARRATIVE: CASE EVENT DATE: 20180325
